FAERS Safety Report 4606811-1 (Version None)
Quarter: 2005Q1

REPORT INFORMATION
  Report Type: 
  Country: None (occurrence: None)
  Receive Date: 20050310
  Receipt Date: 20050223
  Transmission Date: 20050727
  Serious: Yes (Hospitalization)
  Sender: FDA-Public Use
  Company Number: 2005BI004149

PATIENT
  Age: 45 Year
  Sex: Female
  Weight: 65.7716 kg

DRUGS (5)
  1. AVONEX [Suspect]
     Indication: MULTIPLE SCLEROSIS
     Dosage: 15 UG; QW; IM
     Route: 030
     Dates: start: 19990101, end: 19990101
  2. AVONEX [Suspect]
     Indication: MULTIPLE SCLEROSIS
     Dosage: 30 UG; QW; IM
     Route: 030
     Dates: start: 19990101, end: 20030801
  3. AVONEX [Suspect]
     Indication: MULTIPLE SCLEROSIS
     Dosage: 30 UG; QW; IM
     Route: 030
     Dates: start: 20030801, end: 20050201
  4. UNIVASC [Concomitant]
  5. ZOCOR [Concomitant]

REACTIONS (6)
  - ABASIA [None]
  - CELLULITIS [None]
  - MUSCLE SPASTICITY [None]
  - OSTEOPENIA [None]
  - POLLAKIURIA [None]
  - POSTMENOPAUSE [None]
